FAERS Safety Report 5236571-5 (Version None)
Quarter: 2007Q1

REPORT INFORMATION
  Report Type: 
  Country: None (occurrence: None)
  Receive Date: 20070208
  Receipt Date: 20070131
  Transmission Date: 20070707
  Serious: Yes (Death)
  Sender: FDA-Public Use
  Company Number: 2007-153878-NL

PATIENT
  Age: 63 Year
  Sex: Female

DRUGS (1)
  1. VECURONIUM BROMIDE [Suspect]
     Dosage: DF INTRAVENOUS (NOS), 10 CC SYRINGE
     Route: 042

REACTIONS (6)
  - BREAST MASS [None]
  - COMPLETED SUICIDE [None]
  - LYMPHADENOPATHY [None]
  - METASTASIS [None]
  - RESPIRATORY PARALYSIS [None]
  - SKIN ULCER [None]
